FAERS Safety Report 13890980 (Version 4)
Quarter: 2017Q4

REPORT INFORMATION
  Report Type: Spontaneous
  Country: US (occurrence: US)
  Receive Date: 20170822
  Receipt Date: 20171020
  Transmission Date: 20180320
  Serious: Yes (Hospitalization)
  Sender: FDA-Public Use
  Company Number: US-BIOGEN-2017BI00447488

PATIENT
  Sex: Female

DRUGS (1)
  1. SPINRAZA [Suspect]
     Active Substance: NUSINERSEN
     Indication: SPINAL MUSCULAR ATROPHY
     Dosage: FIRST 3 LOADING DOSE EVERY 14 DAYS:4TH LOADING DOSE ONCE AFTER 30 DAYS. MAINTENANCE DOSES ONCE EVERY
     Route: 037
     Dates: start: 20170810, end: 20170824

REACTIONS (5)
  - Drug administered at inappropriate site [Unknown]
  - Headache [Unknown]
  - Hypertension [Unknown]
  - Procedural complication [Unknown]
  - Syringomyelia [Unknown]

NARRATIVE: CASE EVENT DATE: 20170810
